FAERS Safety Report 4291284-1 (Version None)
Quarter: 2004Q1

REPORT INFORMATION
  Report Type: 
  Country: None (occurrence: None)
  Receive Date: 20040211
  Receipt Date: 20031202
  Transmission Date: 20041129
  Serious: No
  Sender: FDA-Public Use
  Company Number: US-GLAXOSMITHKLINE-A0441634A

PATIENT
  Age: 37 Year
  Sex: Male

DRUGS (2)
  1. PAXIL [Suspect]
     Indication: DEPRESSION
     Route: 048
     Dates: start: 20031201
  2. UNSPECIFIED MEDICATION [Concomitant]

REACTIONS (3)
  - ANXIETY [None]
  - FATIGUE [None]
  - INSOMNIA [None]
